FAERS Safety Report 24737574 (Version 1)
Quarter: 2024Q4

REPORT INFORMATION
  Report Type: Spontaneous
  Country: US (occurrence: None)
  Receive Date: 20241216
  Receipt Date: 20241216
  Transmission Date: 20250115
  Serious: No
  Sender: Public
  Company Number: None

PATIENT
  Sex: Female

DRUGS (1)
  1. ILARIS [Suspect]
     Active Substance: CANAKINUMAB
     Indication: Still^s disease
     Dosage: FREQUENCY : MONTHLY;?
     Route: 058
     Dates: start: 202404

REACTIONS (4)
  - Haemophagocytic lymphohistiocytosis [None]
  - Anaemia [None]
  - Condition aggravated [None]
  - Still^s disease [None]
